FAERS Safety Report 5794572-2 (Version None)
Quarter: 2008Q2

REPORT INFORMATION
  Report Type: 
  Country: None (occurrence: None)
  Receive Date: 20080626
  Receipt Date: 20080620
  Transmission Date: 20081010
  Serious: Yes (Other)
  Sender: FDA-Public Use
  Company Number: CAR-2008-028

PATIENT
  Sex: Female

DRUGS (1)
  1. SUCRALFATE [Suspect]
     Dates: start: 20070124

REACTIONS (1)
  - HEPATIC FUNCTION ABNORMAL [None]
